FAERS Safety Report 17098995 (Version 1)
Quarter: 2019Q4

REPORT INFORMATION
  Report Type: Spontaneous
  Country: CN (occurrence: CN)
  Receive Date: 20191202
  Receipt Date: 20191202
  Transmission Date: 20200122
  Serious: Yes (Disabling)
  Sender: FDA-Public Use
  Company Number: CN-PRINSTON PHARMACEUTICAL INC.-2019PRN00933

PATIENT
  Age: 24 Year
  Sex: Female

DRUGS (3)
  1. CLONAZEPAM. [Suspect]
     Active Substance: CLONAZEPAM
     Indication: INSOMNIA
  2. CLONAZEPAM. [Suspect]
     Active Substance: CLONAZEPAM
     Indication: EPILEPSY
     Dosage: 2 MG, 2X/DAY
     Route: 048
  3. SODIUM VALPROATE SUSTAINED RELEASE [Concomitant]
     Indication: EPILEPSY
     Dosage: 500 MG, 2X/DAY
     Route: 048

REACTIONS (3)
  - Myopathy toxic [Not Recovered/Not Resolved]
  - Loss of personal independence in daily activities [Not Recovered/Not Resolved]
  - Bedridden [Not Recovered/Not Resolved]
